FAERS Safety Report 4716721-7 (Version None)
Quarter: 2005Q3

REPORT INFORMATION
  Report Type: 
  Country: None (occurrence: None)
  Receive Date: 20050714
  Receipt Date: 20050711
  Transmission Date: 20060218
  Serious: Yes (Hospitalization, Other)
  Sender: FDA-Public Use
  Company Number: DEWYE742714JUN05

PATIENT
  Age: 51 Year
  Sex: Male

DRUGS (1)
  1. RAPAMUNE [Suspect]
     Indication: PROPHYLAXIS AGAINST TRANSPLANT REJECTION
     Dosage: 6 MG ORAL
     Route: 048
     Dates: start: 20050501, end: 20050101

REACTIONS (2)
  - ALVEOLITIS ALLERGIC [None]
  - LUNG INFECTION PSEUDOMONAL [None]
